FAERS Safety Report 26168926 (Version 1)
Quarter: 2025Q4

REPORT INFORMATION
  Report Type: Report from Study
  Country: US (occurrence: US)
  Receive Date: 20251217
  Receipt Date: 20251217
  Transmission Date: 20260118
  Serious: Yes (Other)
  Sender: ABBVIE
  Company Number: US-ABBVIE-6593032

PATIENT
  Age: 66 Year
  Sex: Male

DRUGS (1)
  1. SKYRIZI [Suspect]
     Active Substance: RISANKIZUMAB-RZAA
     Indication: Psoriasis
     Dosage: STRENGTH 150MG/ML AT WEEK 0
     Route: 058
     Dates: start: 20251124

REACTIONS (2)
  - Ear neoplasm malignant [Unknown]
  - Ear injury [Unknown]

NARRATIVE: CASE EVENT DATE: 20250101
